FAERS Safety Report 15903925 (Version 1)
Quarter: 2019Q1

REPORT INFORMATION
  Report Type: Spontaneous
  Country: SE (occurrence: SE)
  Receive Date: 20190204
  Receipt Date: 20190204
  Transmission Date: 20190417
  Serious: Yes (Other)
  Sender: FDA-Public Use
  Company Number: SE-ACCORD-105491

PATIENT
  Age: 74 Year
  Sex: Male

DRUGS (2)
  1. OXALIPLATIN. [Suspect]
     Active Substance: OXALIPLATIN
     Indication: CHEMOTHERAPY
     Dosage: 85 MG/KVM
     Route: 042
  2. ZARZIO [Concomitant]
     Active Substance: FILGRASTIM

REACTIONS (1)
  - Sensorimotor disorder [Recovered/Resolved]

NARRATIVE: CASE EVENT DATE: 20180328
